FAERS Safety Report 22152016 (Version 1)
Quarter: 2023Q1

REPORT INFORMATION
  Report Type: Spontaneous
  Country: US (occurrence: US)
  Receive Date: 20230329
  Receipt Date: 20230329
  Transmission Date: 20230417
  Serious: No
  Sender: FDA-Public Use
  Company Number: US-AMGEN-USASP2021216018

PATIENT
  Age: 55 Year
  Sex: Female

DRUGS (2)
  1. REPATHA [Suspect]
     Active Substance: EVOLOCUMAB
     Indication: Blood cholesterol
     Dosage: 140 MILLIGRAM
     Route: 058
     Dates: start: 202006
  2. REPATHA [Suspect]
     Active Substance: EVOLOCUMAB
     Dosage: 140 MILLIGRAM
     Route: 058
     Dates: start: 202006

REACTIONS (1)
  - Device difficult to use [Unknown]

NARRATIVE: CASE EVENT DATE: 20210725
